FAERS Safety Report 6155586-6 (Version None)
Quarter: 2009Q2

REPORT INFORMATION
  Report Type: 
  Country: None (occurrence: None)
  Receive Date: 20090410
  Receipt Date: 20090410
  Transmission Date: 20091009
  Serious: Yes (Hospitalization)
  Sender: FDA-Public Use
  Company Number: None

PATIENT
  Age: 94 Year
  Sex: Female
  Weight: 68.0396 kg

DRUGS (1)
  1. AMBIEN [Suspect]
     Indication: INSOMNIA
     Dosage: 1 X A NIGHT PO
     Route: 048
     Dates: start: 20081223, end: 20081223

REACTIONS (8)
  - AGGRESSION [None]
  - AGITATION [None]
  - ANXIETY [None]
  - DELUSION [None]
  - DRUG EFFECT DECREASED [None]
  - INSOMNIA [None]
  - MENTAL IMPAIRMENT [None]
  - PARANOIA [None]
